FAERS Safety Report 19112552 (Version 2)
Quarter: 2021Q3

REPORT INFORMATION
  Report Type: Spontaneous
  Country: BR (occurrence: BR)
  Receive Date: 20210409
  Receipt Date: 20210922
  Transmission Date: 20211014
  Serious: Yes (Hospitalization, Other)
  Sender: FDA-Public Use
  Company Number: BR-AMGEN-BRASP2020030524

PATIENT
  Age: 9 Year
  Sex: Female

DRUGS (2)
  1. XGEVA [Suspect]
     Active Substance: DENOSUMAB
     Indication: OFF LABEL USE
     Dosage: 120 MILLIGRAM, QMO
     Route: 058
     Dates: end: 20171124
  2. XGEVA [Suspect]
     Active Substance: DENOSUMAB
     Indication: BONE GIANT CELL TUMOUR MALIGNANT
     Dosage: 120 MILLIGRAM, LOADING DOSES ON DAYS 8 AND 15 OF THE FIRST MONTH
     Route: 058
     Dates: start: 20161014

REACTIONS (10)
  - Rebound effect [Recovered/Resolved]
  - Dehydration [Unknown]
  - Traumatic tooth displacement [Unknown]
  - Pallor [Unknown]
  - Osteonecrosis of jaw [Recovered/Resolved]
  - Vomiting [Recovered/Resolved]
  - Renal impairment [Recovered/Resolved]
  - Artificial crown procedure [Unknown]
  - Hypercalcaemia [Recovered/Resolved]
  - Off label use [Unknown]

NARRATIVE: CASE EVENT DATE: 20161014
